FAERS Safety Report 7492217-7 (Version None)
Quarter: 2011Q2

REPORT INFORMATION
  Report Type: 
  Country: None (occurrence: None)
  Receive Date: 20110519
  Receipt Date: 20101115
  Transmission Date: 20111010
  Serious: No
  Sender: FDA-Public Use
  Company Number: US-NOVEN-ALL1-2010-05430

PATIENT
  Age: 14 Year
  Sex: Female
  Weight: 63.492 kg

DRUGS (5)
  1. DAYTRANA [Suspect]
     Dosage: 15 MG, 1X/DAY:QD
     Route: 062
  2. DAYTRANA [Suspect]
     Dosage: 10 MG, 1X/DAY:QD
     Route: 062
     Dates: start: 20080101
  3. DAYTRANA [Suspect]
     Dosage: 30 MG, 1X/DAY:QD
     Route: 062
     Dates: start: 20100101
  4. ALLEGRA [Suspect]
     Dosage: 180 MG, 1X/DAY:QD
     Route: 048
     Dates: start: 20100909
  5. DAYTRANA [Suspect]
     Dosage: 20 MG, 1X/DAY:QD
     Route: 062

REACTIONS (6)
  - PRURITUS [None]
  - DECREASED APPETITE [None]
  - WEIGHT INCREASED [None]
  - HYPERPHAGIA [None]
  - DRUG INEFFECTIVE [None]
  - PRODUCT QUALITY ISSUE [None]
